FAERS Safety Report 16858788 (Version 10)
Quarter: 2020Q1

REPORT INFORMATION
  Report Type: Report from Study
  Country: US (occurrence: US)
  Receive Date: 20190926
  Receipt Date: 20200325
  Transmission Date: 20200409
  Serious: Yes (Hospitalization)
  Sender: FDA-Public Use
  Company Number: US-ACTELION-A-NJ2019-196152

PATIENT
  Age: 42 Year
  Sex: Male
  Weight: 82.99 kg

DRUGS (5)
  1. REMODULIN [Suspect]
     Active Substance: TREPROSTINIL
     Indication: PRODUCT USED FOR UNKNOWN INDICATION
     Dosage: 20 NG/KG, PER MIN
     Route: 042
  2. REMODULIN [Suspect]
     Active Substance: TREPROSTINIL
     Dosage: 8 NG/KG, PER MIN
     Route: 065
  3. OPSUMIT [Suspect]
     Active Substance: MACITENTAN
     Indication: PULMONARY HYPERTENSION
     Dosage: 10 MG, QD
     Route: 048
  4. REMODULIN [Suspect]
     Active Substance: TREPROSTINIL
     Route: 065
  5. SILDENAFIL CITRATE. [Concomitant]
     Active Substance: SILDENAFIL CITRATE

REACTIONS (13)
  - Internal haemorrhage [Unknown]
  - Abdominal distension [Unknown]
  - Pain in extremity [Unknown]
  - Pulmonary arterial hypertension [Unknown]
  - Pleural effusion [Unknown]
  - Nausea [Unknown]
  - Oesophageal haemorrhage [Unknown]
  - Pain in jaw [Unknown]
  - Hyponatraemia [Unknown]
  - Insomnia [Unknown]
  - Abdominal pain [Unknown]
  - Headache [Unknown]
  - Melaena [Unknown]

NARRATIVE: CASE EVENT DATE: 201912
